FAERS Safety Report 8168502-2 (Version None)
Quarter: 2012Q1

REPORT INFORMATION
  Report Type: 
  Country: None (occurrence: None)
  Receive Date: 20120227
  Receipt Date: 20120227
  Transmission Date: 20120608
  Serious: Yes (Hospitalization)
  Sender: FDA-Public Use
  Company Number: None

PATIENT
  Age: 81 Year
  Sex: Male
  Weight: 92.6 kg

DRUGS (2)
  1. PLAVIX [Concomitant]
     Indication: CORONARY ARTERIAL STENT INSERTION
     Dosage: 75 MG
     Route: 048
  2. PRADAXA [Suspect]
     Indication: ATRIAL FIBRILLATION
     Dosage: 150 MG
     Route: 048

REACTIONS (3)
  - GASTRIC DISORDER [None]
  - GASTROINTESTINAL HAEMORRHAGE [None]
  - MELAENA [None]
